FAERS Safety Report 5254783-1 (Version None)
Quarter: 2007Q1

REPORT INFORMATION
  Report Type: 
  Country: None (occurrence: None)
  Receive Date: 20070305
  Receipt Date: 20070301
  Transmission Date: 20070707
  Serious: Yes (Other)
  Sender: FDA-Public Use
  Company Number: US-JNJFOC-20070205484

PATIENT
  Age: 48 Year
  Sex: Female

DRUGS (6)
  1. TOPAMAX [Suspect]
  2. TOPAMAX [Suspect]
     Indication: MIGRAINE PROPHYLAXIS
     Dosage: TITRATED TO 50 MG TWICE DAILY
  3. NORTRIPTYLINE HCL [Concomitant]
  4. RELPAX [Concomitant]
     Indication: MIGRAINE
  5. NASONEX [Concomitant]
  6. ZYRTEC [Concomitant]

REACTIONS (3)
  - EYE PAIN [None]
  - NEUROLEPTIC MALIGNANT SYNDROME [None]
  - PARAESTHESIA [None]
